APPROVED DRUG PRODUCT: RANITIDINE HYDROCHLORIDE
Active Ingredient: RANITIDINE HYDROCHLORIDE
Strength: EQ 150MG BASE
Dosage Form/Route: TABLET;ORAL
Application: A074552 | Product #001
Applicant: PHARMOBEDIENT CONSULTING LLC
Approved: Jul 30, 1998 | RLD: No | RS: No | Type: DISCN